FAERS Safety Report 6790904-7 (Version None)
Quarter: 2010Q2

REPORT INFORMATION
  Report Type: 
  Country: None (occurrence: None)
  Receive Date: 20100624
  Receipt Date: 20100614
  Transmission Date: 20101027
  Serious: Yes (Other)
  Sender: FDA-Public Use
  Company Number: B0661255A

PATIENT
  Age: 7 Month

DRUGS (2)
  1. ALKERAN [Suspect]
     Indication: RETINOBLASTOMA BILATERAL
     Dosage: 5MG PER DAY
     Route: 042
  2. ALKERAN [Suspect]
     Dosage: 5MGM2 PER DAY
     Route: 042

REACTIONS (2)
  - BONE MARROW FAILURE [None]
  - RETINAL DETACHMENT [None]
